FAERS Safety Report 9146841 (Version 1)
Quarter: 2013Q1

REPORT INFORMATION
  Report Type: Spontaneous
  Country: CH (occurrence: CH)
  Receive Date: 20130307
  Receipt Date: 20130307
  Transmission Date: 20140127
  Serious: Yes (Life-Threatening, Hospitalization)
  Sender: FDA-Public Use
  Company Number: CH-PFIZER INC-2013077482

PATIENT
  Age: 53 Year
  Sex: Female

DRUGS (10)
  1. LYRICA [Suspect]
     Dosage: 150 MG, 2X/DAY
     Route: 048
     Dates: end: 20130203
  2. IRFEN [Suspect]
     Indication: INTERVERTEBRAL DISC DISORDER
     Dosage: 600 MG, UP TO 7X/DAY
     Route: 048
     Dates: end: 20130203
  3. SURMONTIL [Suspect]
     Dosage: 75 MG, 1X/DAY
     Route: 048
     Dates: end: 20130203
  4. CIPRALEX [Suspect]
     Dosage: 10 MG, 1X/DAY
     Route: 048
     Dates: end: 20130203
  5. METHADONE [Suspect]
     Indication: INTERVERTEBRAL DISC DISORDER
     Dosage: 40 MG, 2X/DAY
     Route: 048
     Dates: end: 20130203
  6. ASPIRIN CARDIO [Concomitant]
     Dosage: 100 MG, 1X/DAY
     Route: 048
  7. TRIATEC COMP [Concomitant]
     Dosage: 25MG/5MG, 1X/DAY
     Route: 048
     Dates: end: 20130203
  8. PANTOZOL [Concomitant]
     Dosage: 40 MG, 1X/DAY
     Route: 048
  9. PARACETAMOL [Concomitant]
     Dosage: UNK
  10. IBUPROFEN [Concomitant]
     Dosage: 200 MG, UNK

REACTIONS (1)
  - Hepatic failure [Recovering/Resolving]
